FAERS Safety Report 8697295 (Version 2)
Quarter: 2013Q2

REPORT INFORMATION
  Report Type: Spontaneous
  Country: US (occurrence: MX)
  Receive Date: 20120801
  Receipt Date: 20130627
  Transmission Date: 20140414
  Serious: Yes (Hospitalization)
  Sender: FDA-Public Use
  Company Number: US-GLAXOSMITHKLINE-A0986356A

PATIENT
  Age: 35 Year
  Sex: Female

DRUGS (6)
  1. LAMICTAL [Suspect]
     Indication: DEPRESSION
     Dosage: 150MG PER DAY
     Route: 048
  2. ELMIRON [Concomitant]
  3. BENEFIBER [Concomitant]
  4. LORAZEPAM [Concomitant]
  5. AMBIEN [Concomitant]
  6. HYDROCODONE [Concomitant]

REACTIONS (2)
  - Vaginal haemorrhage [Unknown]
  - Exposure during pregnancy [Unknown]
